FAERS Safety Report 5828905-5 (Version None)
Quarter: 2008Q3

REPORT INFORMATION
  Report Type: 
  Country: None (occurrence: None)
  Receive Date: 20080730
  Receipt Date: 20080723
  Transmission Date: 20090109
  Serious: Yes (Other)
  Sender: FDA-Public Use
  Company Number: APP200800697

PATIENT
  Sex: Male

DRUGS (1)
  1. HEPARIN SODIUM INJECTION [Suspect]
     Indication: DRUG USE FOR UNKNOWN INDICATION
     Dosage: 5000 USP UNITS, ONCE, INTRAVENOUS
     Route: 042
     Dates: start: 20080717, end: 20080717

REACTIONS (2)
  - COAGULATION TIME PROLONGED [None]
  - HAEMORRHAGE [None]
